FAERS Safety Report 5089889-3 (Version None)
Quarter: 2006Q3

REPORT INFORMATION
  Report Type: 
  Country: None (occurrence: None)
  Receive Date: 20060727
  Receipt Date: 20060522
  Transmission Date: 20061208
  Serious: Yes (Other)
  Sender: FDA-Public Use
  Company Number: 2006068019

PATIENT
  Sex: Male

DRUGS (11)
  1. LYRICA [Suspect]
     Indication: ILL-DEFINED DISORDER
     Dosage: UNKNOWN
     Route: 065
  2. PEG-INTRON [Suspect]
     Indication: ILL-DEFINED DISORDER
     Dosage: UNKNOWN
     Route: 065
     Dates: end: 20040402
  3. AMBIEN (ZOLPIDEN TARTRATE) [Concomitant]
  4. BUPROPION HCL [Concomitant]
  5. ALPRAZOLAM [Concomitant]
  6. VICODIN (HYDROCODONE BIARTRATE, PARACETAMOL) [Concomitant]
  7. NAPROXEN [Concomitant]
  8. ADVAIR DISKUS 100/50 [Concomitant]
  9. BISOPROOL FUMARATE/ HYDROCHLOROTHIAZIDE (BISOPROOL FUMARATE/ HYDROCHLO [Concomitant]
  10. ZOLOFT [Concomitant]
  11. TRAZODONE HCL [Concomitant]

REACTIONS (3)
  - DRUG INTERACTION [None]
  - FATIGUE [None]
  - PYREXIA [None]
